FAERS Safety Report 16565938 (Version 2)
Quarter: 2019Q3

REPORT INFORMATION
  Report Type: Spontaneous
  Country: CN (occurrence: CN)
  Receive Date: 20190712
  Receipt Date: 20190718
  Transmission Date: 20191004
  Serious: Yes (Other)
  Sender: FDA-Public Use
  Company Number: CN-TERSERA THERAPEUTICS LLC-2019TRS001139

PATIENT

DRUGS (2)
  1. ZOLADEX [Suspect]
     Active Substance: GOSERELIN ACETATE
     Indication: PROSTATE CANCER
     Dosage: 10.8 UNKNOWN, ONCE EVERY 12 WEEKS
     Route: 058
  2. RIVANOL [Concomitant]
     Active Substance: ETHACRIDINE LACTATE
     Indication: PRODUCT USED FOR UNKNOWN INDICATION
     Dosage: UNK
     Route: 065

REACTIONS (5)
  - Injection site erythema [Recovering/Resolving]
  - Haemorrhage subcutaneous [Recovering/Resolving]
  - Injection site mass [Recovering/Resolving]
  - Injection site swelling [Recovering/Resolving]
  - Injection site pain [Recovering/Resolving]
